FAERS Safety Report 5518939-2 (Version None)
Quarter: 2007Q4

REPORT INFORMATION
  Report Type: 
  Country: None (occurrence: None)
  Receive Date: 20071113
  Receipt Date: 20071113
  Transmission Date: 20080405
  Serious: Yes (Other)
  Sender: FDA-Public Use
  Company Number: None

PATIENT
  Age: 36 Year
  Sex: Female
  Weight: 63.5036 kg

DRUGS (1)
  1. LAMICTAL [Suspect]
     Indication: BIPOLAR DISORDER
     Dosage: 50MG DAILY PO
     Route: 048
     Dates: start: 20071017, end: 20071105

REACTIONS (6)
  - DRY MOUTH [None]
  - LYMPHADENOPATHY [None]
  - PHARYNGITIS [None]
  - SINUSITIS [None]
  - SLEEP DISORDER [None]
  - VASCULITIS [None]
